FAERS Safety Report 11487348 (Version 1)
Quarter: 2015Q3

REPORT INFORMATION
  Report Type: Spontaneous
  Country: US (occurrence: US)
  Receive Date: 20150910
  Receipt Date: 20150910
  Transmission Date: 20151125
  Serious: No
  Sender: FDA-Public Use
  Company Number: US-ROCHE-1417526

PATIENT
  Age: 61 Year
  Sex: Male

DRUGS (1)
  1. PEGASYS [Suspect]
     Active Substance: PEGINTERFERON ALFA-2A
     Indication: HEPATITIS C
     Route: 058
     Dates: start: 20140603

REACTIONS (6)
  - Abdominal rigidity [Unknown]
  - Chills [Unknown]
  - Pain [Unknown]
  - Injection site erythema [Unknown]
  - Rash [Unknown]
  - Rash generalised [Unknown]

NARRATIVE: CASE EVENT DATE: 20140603
